FAERS Safety Report 6878271-1 (Version None)
Quarter: 2010Q3

REPORT INFORMATION
  Report Type: 
  Country: None (occurrence: None)
  Receive Date: 20100728
  Receipt Date: 20100716
  Transmission Date: 20110219
  Serious: Yes (Other)
  Sender: FDA-Public Use
  Company Number: JP-PFIZER INC-2010071092

PATIENT
  Age: 76 Year
  Sex: Male

DRUGS (1)
  1. SUTENT [Suspect]
     Indication: RENAL CELL CARCINOMA
     Dosage: 37.5 MG, 1X/DAY
     Route: 048
     Dates: start: 20100510, end: 20100606

REACTIONS (4)
  - BLOOD BILIRUBIN INCREASED [None]
  - BLOOD THYROID STIMULATING HORMONE INCREASED [None]
  - DECREASED APPETITE [None]
  - JAUNDICE [None]
